FAERS Safety Report 15326704 (Version 1)
Quarter: 2018Q3

REPORT INFORMATION
  Report Type: Spontaneous
  Country: US (occurrence: US)
  Receive Date: 20180828
  Receipt Date: 20180828
  Transmission Date: 20181010
  Serious: No
  Sender: FDA-Public Use
  Company Number: US-AMAG PHARMACEUTICALS, INC.-AMAG201802330

PATIENT
  Age: 56 Year
  Sex: Female
  Weight: 70.3 kg

DRUGS (1)
  1. INTRAROSA [Suspect]
     Active Substance: PRASTERONE
     Indication: LIBIDO INCREASED
     Dosage: 6.5 MG, QHS
     Route: 067
     Dates: start: 20180325

REACTIONS (2)
  - Off label use [Unknown]
  - Vaginal discharge [Not Recovered/Not Resolved]

NARRATIVE: CASE EVENT DATE: 20180325
